FAERS Safety Report 6123157-3 (Version None)
Quarter: 2009Q1

REPORT INFORMATION
  Report Type: 
  Country: None (occurrence: None)
  Receive Date: 20090318
  Receipt Date: 20090311
  Transmission Date: 20090719
  Serious: Yes (Other)
  Sender: FDA-Public Use
  Company Number: CA-JNJFOC-20090303655

PATIENT
  Age: 4 Year
  Sex: Female
  Weight: 17 kg

DRUGS (2)
  1. CHILDREN'S TYLENOL LIQUID BANANA BERRY TWIST [Suspect]
     Route: 048
  2. CHILDREN'S TYLENOL LIQUID BANANA BERRY TWIST [Suspect]
     Indication: DRUG USE FOR UNKNOWN INDICATION
     Dosage: 3200 MG (188 MG/KG) ONCE TOTAL
     Route: 048

REACTIONS (2)
  - ACCIDENTAL DRUG INTAKE BY CHILD [None]
  - ACCIDENTAL OVERDOSE [None]
